FAERS Safety Report 18932227 (Version 1)
Quarter: 2021Q1

REPORT INFORMATION
  Report Type: Spontaneous
  Country: US (occurrence: US)
  Receive Date: 20210224
  Receipt Date: 20210224
  Transmission Date: 20210420
  Serious: No
  Sender: FDA-Public Use
  Company Number: US-TEVA-2021-US-1883298

PATIENT
  Sex: Female

DRUGS (1)
  1. PENICILLIN [Suspect]
     Active Substance: PENICILLIN
     Route: 065

REACTIONS (4)
  - Drug hypersensitivity [Unknown]
  - Illness [Unknown]
  - Pyrexia [Unknown]
  - Overdose [Unknown]
